FAERS Safety Report 6043866-4 (Version None)
Quarter: 2009Q1

REPORT INFORMATION
  Report Type: 
  Country: None (occurrence: None)
  Receive Date: 20090120
  Receipt Date: 20090113
  Transmission Date: 20090719
  Serious: Yes (Death)
  Sender: FDA-Public Use
  Company Number: US-BRISTOL-MYERS SQUIBB COMPANY-14470710

PATIENT
  Age: 92 Year
  Sex: Female

DRUGS (6)
  1. WARFARIN SODIUM [Suspect]
     Route: 048
  2. DIGOXIN [Suspect]
     Route: 048
  3. FUROSEMIDE [Suspect]
     Route: 048
  4. VALSARTAN [Suspect]
     Route: 048
  5. DONEPEZIL HCL [Suspect]
     Route: 048
  6. METOPROLOL TARTRATE AND HYDROCHLOROTHIAZIDE [Suspect]
     Route: 048

REACTIONS (1)
  - INTENTIONAL DRUG MISUSE [None]
